FAERS Safety Report 7228417-0 (Version None)
Quarter: 2011Q1

REPORT INFORMATION
  Report Type: 
  Country: None (occurrence: None)
  Receive Date: 20110114
  Receipt Date: 20110111
  Transmission Date: 20110831
  Serious: Yes (Congenital Anomaly, Other)
  Sender: FDA-Public Use
  Company Number: US-GILEAD-2011-0034856

PATIENT
  Age: 25 Week
  Sex: Female
  Weight: 0.295 kg

DRUGS (4)
  1. ATRIPLA [Suspect]
     Indication: HIV INFECTION
     Route: 064
  2. REYATAZ [Suspect]
     Indication: HIV INFECTION
     Route: 064
  3. NORVIR [Suspect]
     Indication: HIV INFECTION
     Route: 064
  4. TRUVADA [Suspect]
     Indication: HIV INFECTION
     Route: 064

REACTIONS (1)
  - WOLF-HIRSCHHORN SYNDROME [None]
